FAERS Safety Report 25517579 (Version 1)
Quarter: 2025Q3

REPORT INFORMATION
  Report Type: Spontaneous
  Country: EU (occurrence: EU)
  Receive Date: 20250704
  Receipt Date: 20250704
  Transmission Date: 20251021
  Serious: Yes (Other)
  Sender: RANBAXY
  Company Number: EU-SUN PHARMACEUTICAL INDUSTRIES LTD-2025RR-515135

PATIENT
  Age: 25 Year
  Sex: Female
  Weight: 80 kg

DRUGS (1)
  1. ISOTRETINOIN [Suspect]
     Active Substance: ISOTRETINOIN
     Indication: Acne cystic
     Dosage: 30MG PRO TAG
     Route: 048
     Dates: start: 20241224

REACTIONS (6)
  - Vulvovaginal injury [Not Recovered/Not Resolved]
  - Dry skin [Not Recovered/Not Resolved]
  - Eczema [Not Recovered/Not Resolved]
  - Lip dry [Not Recovered/Not Resolved]
  - Anal fissure [Not Recovered/Not Resolved]
  - Vulvovaginal dryness [Not Recovered/Not Resolved]

NARRATIVE: CASE EVENT DATE: 20250201
